FAERS Safety Report 19306865 (Version 2)
Quarter: 2021Q3

REPORT INFORMATION
  Report Type: Spontaneous
  Country: US (occurrence: US)
  Receive Date: 20210525
  Receipt Date: 20210706
  Transmission Date: 20211014
  Serious: No
  Sender: FDA-Public Use
  Company Number: US-SA-2021SA161944

PATIENT
  Age: 84 Year
  Sex: Female

DRUGS (1)
  1. NASACORT [Suspect]
     Active Substance: TRIAMCINOLONE ACETONIDE
     Indication: HYPERSENSITIVITY
     Dosage: UNK UNK, QD
     Route: 065

REACTIONS (6)
  - Drug delivery system issue [Unknown]
  - Rhinorrhoea [Unknown]
  - Incorrect dose administered by device [Unknown]
  - Device occlusion [Unknown]
  - Off label use [Unknown]
  - Drug ineffective [Unknown]
